APPROVED DRUG PRODUCT: OXYBUTYNIN CHLORIDE
Active Ingredient: OXYBUTYNIN CHLORIDE
Strength: 5MG
Dosage Form/Route: TABLET;ORAL
Application: A211062 | Product #001
Applicant: HIBROW HEALTHCARE PRIVATE LTD
Approved: Feb 6, 2019 | RLD: No | RS: No | Type: DISCN